FAERS Safety Report 4548819-0 (Version None)
Quarter: 2004Q4

REPORT INFORMATION
  Report Type: 
  Country: None (occurrence: None)
  Receive Date: 20041227
  Receipt Date: 20040916
  Transmission Date: 20050328
  Serious: No
  Sender: FDA-Public Use
  Company Number: 03P-163-0229462-00

PATIENT
  Age: 53 Year
  Sex: Female
  Weight: 52.1637 kg

DRUGS (8)
  1. HUMIRA [Suspect]
     Indication: RHEUMATOID ARTHRITIS
     Dosage: SEE IMAGE
     Route: 058
     Dates: start: 20030512, end: 20040901
  2. HUMIRA [Suspect]
     Indication: RHEUMATOID ARTHRITIS
     Dosage: SEE IMAGE
     Route: 058
     Dates: start: 20040901
  3. ROFECOXIB [Concomitant]
  4. FEXOFENADINE HYDROCHLORIDE [Concomitant]
  5. OESTRANORM [Concomitant]
  6. LEVOTHYROXINE SODIUM [Concomitant]
  7. FLUTICASONE PROPIONATE [Concomitant]
  8. HORMONE RT [Concomitant]

REACTIONS (5)
  - CHILLS [None]
  - FATIGUE [None]
  - NAUSEA [None]
  - RENAL PAIN [None]
  - RHEUMATOID ARTHRITIS [None]
